FAERS Safety Report 9779410 (Version 2)
Quarter: 2013Q4

REPORT INFORMATION
  Report Type: Spontaneous
  Country: US (occurrence: US)
  Receive Date: 20131223
  Receipt Date: 20131230
  Transmission Date: 20140711
  Serious: Yes (Congenital Anomaly, Other)
  Sender: FDA-Public Use
  Company Number: US-PFIZER INC-2013363901

PATIENT
  Sex: Female

DRUGS (12)
  1. ZOLOFT [Suspect]
     Dosage: UNK
     Route: 064
  2. SERTRALINE HCL [Suspect]
     Dosage: UNK
     Route: 064
  3. PRENATAL VITAMINS [Concomitant]
     Dosage: UNK
     Route: 064
  4. AZITHROMYCIN [Concomitant]
     Dosage: UNK
     Route: 064
  5. ALBUTEROL [Concomitant]
     Dosage: UNK
     Route: 064
  6. HYDROCODONE W/ACETAMINOPHEN [Concomitant]
     Dosage: UNK
     Route: 064
  7. FERROUS GLUCONATE [Concomitant]
     Dosage: UNK
     Route: 064
  8. PREDNISONE [Concomitant]
     Dosage: UNK
     Route: 064
  9. METHYLPREDNISOLONE [Concomitant]
     Dosage: UNK
     Route: 064
  10. FERROUS SULFATE [Concomitant]
     Dosage: UNK
     Route: 064
  11. GLUMETZA [Concomitant]
     Dosage: UNK
     Route: 064
  12. INSULIN [Concomitant]
     Dosage: UNK
     Route: 064

REACTIONS (5)
  - Maternal exposure during pregnancy [Unknown]
  - Ventricular septal defect [Unknown]
  - Atrial septal defect [Unknown]
  - Atrial septal defect [Unknown]
  - Malformation venous [Unknown]
